FAERS Safety Report 15367214 (Version 1)
Quarter: 2018Q3

REPORT INFORMATION
  Report Type: Report from Study
  Country: MX (occurrence: MX)
  Receive Date: 20180910
  Receipt Date: 20180910
  Transmission Date: 20181010
  Serious: Yes (Life-Threatening, Hospitalization)
  Sender: FDA-Public Use
  Company Number: MX-ROCHE-2181895

PATIENT
  Age: 64 Year
  Sex: Female

DRUGS (5)
  1. FULVESTRANT. [Concomitant]
     Active Substance: FULVESTRANT
     Indication: BREAST CANCER METASTATIC
     Route: 065
     Dates: start: 201806
  2. PERJETA [Suspect]
     Active Substance: PERTUZUMAB
     Indication: HER-2 POSITIVE BREAST CANCER
     Route: 065
  3. ABEMACICLIB [Concomitant]
     Active Substance: ABEMACICLIB
     Indication: BREAST CANCER METASTATIC
     Route: 048
     Dates: start: 201806
  4. TRASTUZUMAB. [Suspect]
     Active Substance: TRASTUZUMAB
     Indication: HER-2 POSITIVE BREAST CANCER
     Route: 042
     Dates: start: 201408, end: 2016
  5. ABEMACICLIB [Concomitant]
     Active Substance: ABEMACICLIB
     Indication: DIARRHOEA

REACTIONS (10)
  - Brain neoplasm [Recovered/Resolved with Sequelae]
  - Gallbladder disorder [Recovered/Resolved]
  - Immunodeficiency [Not Recovered/Not Resolved]
  - Biliary tract disorder [Recovered/Resolved]
  - Metastases to spine [Recovered/Resolved with Sequelae]
  - Renal injury [Unknown]
  - Diarrhoea [Recovered/Resolved]
  - Gastrointestinal bacterial infection [Recovered/Resolved]
  - Anaemia [Not Recovered/Not Resolved]
  - Biliary tract infection [Recovered/Resolved]

NARRATIVE: CASE EVENT DATE: 2015
